FAERS Safety Report 4705621-4 (Version None)
Quarter: 2005Q3

REPORT INFORMATION
  Report Type: 
  Country: None (occurrence: None)
  Receive Date: 20050701
  Receipt Date: 20010928
  Transmission Date: 20060218
  Serious: Yes (Hospitalization)
  Sender: FDA-Public Use
  Company Number: FR-BOEHRINGER INGELHEIM PHARMACEUTICALS, INC.-2001-FF-S0636

PATIENT
  Sex: Male
  Weight: 3 kg

DRUGS (12)
  1. VIRAMUNE [Suspect]
     Indication: VERTICAL INFECTION TRANSMISSION
     Route: 048
     Dates: start: 20000604, end: 20000604
  2. ZERIT [Suspect]
     Indication: ACQUIRED IMMUNODEFICIENCY SYNDROME
     Route: 015
  3. ZERIT [Suspect]
     Route: 048
     Dates: start: 20000602, end: 20000712
  4. EPIVIR [Suspect]
     Indication: HIV INFECTION
     Route: 015
  5. EPIVIR [Suspect]
     Indication: ACQUIRED IMMUNODEFICIENCY SYNDROME
  6. RETROVIR [Suspect]
     Indication: VERTICAL INFECTION TRANSMISSION
     Route: 042
     Dates: start: 20000602, end: 20000602
  7. VIRAMUNE [Suspect]
     Indication: HIV INFECTION
     Route: 015
  8. IRON [Concomitant]
     Route: 015
  9. SPASFON [Concomitant]
     Route: 015
  10. VITAMINS [Concomitant]
     Route: 015
  11. ERCEFURYL [Concomitant]
     Route: 015
  12. TRIFLUCAN [Concomitant]
     Route: 015

REACTIONS (7)
  - ANAEMIA MACROCYTIC [None]
  - CONSTIPATION [None]
  - DRUG EXPOSURE DURING PREGNANCY [None]
  - HYPERLACTACIDAEMIA [None]
  - HYPERTRIGLYCERIDAEMIA [None]
  - NEONATAL DISORDER [None]
  - STOMATITIS [None]
